FAERS Safety Report 10737653 (Version 1)
Quarter: 2015Q1

REPORT INFORMATION
  Report Type: Spontaneous
  Country: US (occurrence: None)
  Receive Date: 20150122
  Receipt Date: 20150122
  Transmission Date: 20150721
  Serious: Yes (Life-Threatening)
  Sender: FDA-Public Use
  Company Number: US-PULSION-2015-0001

PATIENT

DRUGS (1)
  1. ICG-PULSION [Suspect]
     Active Substance: INDOCYANINE GREEN
     Dosage: 2.5 SINGLE DOSE INTRAVENOUS (NOT OTHERWISE SPECIFIED)?
     Route: 042

REACTIONS (1)
  - Cardiac arrest [None]
